FAERS Safety Report 23623188 (Version 1)
Quarter: 2024Q1

REPORT INFORMATION
  Report Type: Spontaneous
  Country: US (occurrence: US)
  Receive Date: 20240312
  Receipt Date: 20240312
  Transmission Date: 20240409
  Serious: Yes (Hospitalization, Other)
  Sender: FDA-Public Use
  Company Number: US-Accord-411161

PATIENT
  Age: 72 Year
  Sex: Male

DRUGS (1)
  1. FLUOROURACIL [Suspect]
     Active Substance: FLUOROURACIL
     Indication: Colon cancer

REACTIONS (3)
  - Acute myocardial infarction [Recovered/Resolved]
  - Cardiotoxicity [Recovered/Resolved]
  - Arteriospasm coronary [Recovered/Resolved]
